FAERS Safety Report 9324837 (Version 1)
Quarter: 2013Q2

REPORT INFORMATION
  Report Type: Spontaneous
  Country: US (occurrence: US)
  Receive Date: 20130603
  Receipt Date: 20130603
  Transmission Date: 20140414
  Serious: Yes (Hospitalization, Other)
  Sender: FDA-Public Use
  Company Number: US-ELI_LILLY_AND_COMPANY-US201304000642

PATIENT
  Age: 82 Year
  Sex: Female

DRUGS (2)
  1. FORTEO [Suspect]
     Indication: FRACTURE
     Dosage: 20 UG, QD
     Dates: start: 20130301
  2. FORTEO [Suspect]
     Dosage: 20 UG, QD

REACTIONS (4)
  - Hip fracture [Unknown]
  - Fall [Unknown]
  - Nausea [Unknown]
  - Off label use [Unknown]
